FAERS Safety Report 9531740 (Version 1)
Quarter: 2013Q3

REPORT INFORMATION
  Report Type: Spontaneous
  Country: US (occurrence: US)
  Receive Date: 20130918
  Receipt Date: 20130918
  Transmission Date: 20140515
  Serious: Yes (Other)
  Sender: FDA-Public Use
  Company Number: US-PFIZER INC-2013266975

PATIENT
  Age: 70 Year
  Sex: Female

DRUGS (2)
  1. CELEBREX [Suspect]
     Dosage: UNK
  2. ASPIRIN [Suspect]
     Dosage: A LOW DOSE

REACTIONS (1)
  - Gastric ulcer [Unknown]
